FAERS Safety Report 6546910-0 (Version None)
Quarter: 2010Q1

REPORT INFORMATION
  Report Type: 
  Country: None (occurrence: None)
  Receive Date: 20100122
  Receipt Date: 20100115
  Transmission Date: 20100710
  Serious: Yes (Other)
  Sender: FDA-Public Use
  Company Number: US-PFIZER INC-2010007173

PATIENT
  Sex: Female
  Weight: 77.1 kg

DRUGS (9)
  1. LIPITOR [Suspect]
     Indication: BLOOD CHOLESTEROL INCREASED
     Route: 048
     Dates: start: 20090101, end: 20091229
  2. DEMADEX [Suspect]
     Indication: HYPERTENSION
     Dosage: FREQUENCY: 3X/DAILY,
     Route: 048
  3. DEMADEX [Suspect]
     Indication: CARDIAC FAILURE
  4. LISINOPRIL [Concomitant]
     Dosage: FREQUENCY: 2X/DAY,
  5. TRICOR [Concomitant]
     Dosage: UNK
  6. KLOR-CON [Concomitant]
     Dosage: 10 MEQ, 1X/DAY
  7. PLAVIX [Concomitant]
     Dosage: 75 MG, 1X/DAY
  8. METOPROLOL [Concomitant]
     Dosage: 100 MG, 1X/DAY
  9. NITROGLYCERIN [Concomitant]
     Dosage: FREQUENCY: 3X./DAY,

REACTIONS (3)
  - GAIT DISTURBANCE [None]
  - MUSCLE SPASMS [None]
  - MYALGIA [None]
